FAERS Safety Report 8603960 (Version 2)
Quarter: 2013Q2

REPORT INFORMATION
  Report Type: Spontaneous
  Country: US (occurrence: US)
  Receive Date: 20120608
  Receipt Date: 20130617
  Transmission Date: 20140414
  Serious: Yes (Disabling, Other)
  Sender: FDA-Public Use
  Company Number: US-ASTRAZENECA-2012SE35021

PATIENT
  Age: 16609 Day
  Sex: Male

DRUGS (4)
  1. NEXIUM [Suspect]
     Indication: DYSPEPSIA
     Route: 048
  2. PRILOSEC [Suspect]
     Route: 048
     Dates: start: 20020106
  3. RANITIDINE [Concomitant]
     Route: 048
  4. MYLANTA [Concomitant]

REACTIONS (9)
  - Convulsion [Unknown]
  - Alcohol use [Unknown]
  - Chronic hepatic failure [Unknown]
  - Osteoporosis [Unknown]
  - Affective disorder [Unknown]
  - Hepatitis B [Unknown]
  - Jaw fracture [Unknown]
  - Tooth loss [Unknown]
  - Depression [Unknown]
